FAERS Safety Report 6265820-X (Version None)
Quarter: 2009Q3

REPORT INFORMATION
  Report Type: 
  Country: None (occurrence: None)
  Receive Date: 20090713
  Receipt Date: 20090702
  Transmission Date: 20100115
  Serious: Yes (Other)
  Sender: FDA-Public Use
  Company Number: B0480358A

PATIENT
  Sex: Male
  Weight: 64 kg

DRUGS (1)
  1. AVANDAMET [Suspect]
     Indication: DIABETES MELLITUS
     Route: 048
     Dates: start: 20060713, end: 20070628

REACTIONS (1)
  - LOW DENSITY LIPOPROTEIN INCREASED [None]
